FAERS Safety Report 12714589 (Version 5)
Quarter: 2017Q1

REPORT INFORMATION
  Report Type: Spontaneous
  Country: US (occurrence: US)
  Receive Date: 20160905
  Receipt Date: 20170123
  Transmission Date: 20170428
  Serious: No
  Sender: FDA-Public Use
  Company Number: US-UNITED THERAPEUTICS-UNT-2016-013306

PATIENT
  Age: 55 Year
  Sex: Male
  Weight: 97.52 kg

DRUGS (5)
  1. REMODULIN [Suspect]
     Active Substance: TREPROSTINIL
     Dosage: 0.020 ?G/KG, CONTINUING
     Route: 041
  2. REMODULIN [Suspect]
     Active Substance: TREPROSTINIL
     Dosage: 0.03 ?G/KG, CONTINUING
     Route: 041
  3. REMODULIN [Suspect]
     Active Substance: TREPROSTINIL
     Indication: PULMONARY ARTERIAL HYPERTENSION
     Dosage: 0.008 ?G/KG, CONTINUING
     Route: 041
     Dates: start: 20160812
  4. REMODULIN [Suspect]
     Active Substance: TREPROSTINIL
     Dosage: 0.011 ?G/KG, CONTINUING
     Route: 041
  5. OFEV [Suspect]
     Active Substance: NINTEDANIB
     Indication: PRODUCT USED FOR UNKNOWN INDICATION
     Route: 065

REACTIONS (14)
  - Flatulence [Unknown]
  - Oedema [Recovering/Resolving]
  - Weight decreased [Recovering/Resolving]
  - Palpitations [Unknown]
  - Pain in extremity [Not Recovered/Not Resolved]
  - Dermatitis contact [Unknown]
  - Dyspnoea [Not Recovered/Not Resolved]
  - Neuralgia [Not Recovered/Not Resolved]
  - Diarrhoea [Unknown]
  - Pain in jaw [Unknown]
  - Neuropathy peripheral [Unknown]
  - Rash pruritic [Unknown]
  - Oxygen saturation decreased [Unknown]
  - Back pain [Unknown]

NARRATIVE: CASE EVENT DATE: 201608
